FAERS Safety Report 18966575 (Version 1)
Quarter: 2021Q1

REPORT INFORMATION
  Report Type: Spontaneous
  Country: TR (occurrence: TR)
  Receive Date: 20210303
  Receipt Date: 20210303
  Transmission Date: 20210420
  Serious: Yes (Other)
  Sender: FDA-Public Use
  Company Number: TR-TEVA-2021-TR-1885376

PATIENT
  Age: 68 Year
  Sex: Male

DRUGS (4)
  1. PREGABALIN. [Suspect]
     Active Substance: PREGABALIN
     Dosage: 300 MILLIGRAM DAILY; BECAUSE THE ANALGESIC EFFICACY WAS INSUFFICIENT AFTER 15 DAYS, PREGABALIN WAS I
     Route: 065
  2. PREGABALIN. [Suspect]
     Active Substance: PREGABALIN
     Dosage: 450 MILLIGRAM DAILY;
     Route: 065
  3. PREGABALIN. [Suspect]
     Active Substance: PREGABALIN
     Indication: NEURALGIA
     Dosage: 75 MILLIGRAM DAILY; AT NIGHTS, FOR 3 DAYS, AND THEN 150 MG DAILY AS TWO DIVIDED DOSES
     Route: 065
  4. PREGABALIN. [Suspect]
     Active Substance: PREGABALIN
     Dosage: 300 MILLIGRAM DAILY; AT NIGHTS, FOR 3 DAYS, AND THEN 150 MG DAILY AS TWO DIVIDED DOSES
     Route: 065

REACTIONS (1)
  - Deafness [Recovering/Resolving]
